FAERS Safety Report 5097776-X (Version None)
Quarter: 2006Q3

REPORT INFORMATION
  Report Type: 
  Country: None (occurrence: None)
  Receive Date: 20060905
  Receipt Date: 20060818
  Transmission Date: 20061208
  Serious: Yes (Hospitalization)
  Sender: FDA-Public Use
  Company Number: 8018616

PATIENT
  Sex: Male

DRUGS (2)
  1. KEPPRA [Suspect]
     Dosage: 500 MG 2/D
  2. KEPPRA [Suspect]
     Dosage: 1000 MG 2/D

REACTIONS (2)
  - ATRIOVENTRICULAR BLOCK [None]
  - PARTIAL SEIZURES [None]
